FAERS Safety Report 20205332 (Version 1)
Quarter: 2021Q4

REPORT INFORMATION
  Report Type: Spontaneous
  Country: US (occurrence: US)
  Receive Date: 20211220
  Receipt Date: 20211220
  Transmission Date: 20220304
  Serious: Yes (Other)
  Sender: FDA-Public Use
  Company Number: US-GLAXOSMITHKLINE- US2021GSK257483

PATIENT
  Sex: Male

DRUGS (32)
  1. ZANTAC [Suspect]
     Active Substance: RANITIDINE HYDROCHLORIDE
     Indication: Dyspepsia
     Dosage: 75 MG, 1X DAILY
     Route: 065
     Dates: start: 201301, end: 201901
  2. ZANTAC [Suspect]
     Active Substance: RANITIDINE HYDROCHLORIDE
     Indication: Gastrooesophageal reflux disease
     Dosage: 75 MG, 2 X DAILY
     Route: 065
     Dates: start: 201301, end: 201901
  3. ZANTAC [Suspect]
     Active Substance: RANITIDINE HYDROCHLORIDE
     Dosage: UNK UNK, 1X DAILY
     Route: 065
     Dates: start: 201301, end: 201901
  4. ZANTAC [Suspect]
     Active Substance: RANITIDINE HYDROCHLORIDE
     Dosage: UNK UNK, 2 X DAILY
     Route: 065
     Dates: start: 201301, end: 201901
  5. ZANTAC [Suspect]
     Active Substance: RANITIDINE HYDROCHLORIDE
     Dosage: 150 MG, 1X DAILY
     Route: 065
     Dates: start: 201301, end: 201901
  6. ZANTAC [Suspect]
     Active Substance: RANITIDINE HYDROCHLORIDE
     Dosage: 150 MG, 2 X DAILY
     Route: 065
     Dates: start: 201301, end: 201901
  7. ZANTAC [Suspect]
     Active Substance: RANITIDINE HYDROCHLORIDE
     Indication: Dyspepsia
     Dosage: 75 MG, 1 X DAILY
     Route: 065
     Dates: start: 201301, end: 201901
  8. ZANTAC [Suspect]
     Active Substance: RANITIDINE HYDROCHLORIDE
     Indication: Gastrooesophageal reflux disease
     Dosage: 75 MG, 2 X DAILY
     Route: 065
     Dates: start: 201301, end: 201901
  9. ZANTAC [Suspect]
     Active Substance: RANITIDINE HYDROCHLORIDE
     Dosage: UNK UNK, 1 X DAILY
     Route: 065
     Dates: start: 201301, end: 201901
  10. ZANTAC [Suspect]
     Active Substance: RANITIDINE HYDROCHLORIDE
     Dosage: UNK UNK, 2 X DAILY
     Route: 065
     Dates: start: 201301, end: 201901
  11. ZANTAC [Suspect]
     Active Substance: RANITIDINE HYDROCHLORIDE
     Dosage: 150 MG, 1 X DAILY
     Route: 065
     Dates: start: 201301, end: 201901
  12. ZANTAC [Suspect]
     Active Substance: RANITIDINE HYDROCHLORIDE
     Dosage: 150 MG, 2 X DAILY
     Route: 065
     Dates: start: 201301, end: 201901
  13. RANITIDINE HYDROCHLORIDE [Suspect]
     Active Substance: RANITIDINE HYDROCHLORIDE
     Indication: Dyspepsia
     Dosage: UNK UNK, QD
     Route: 065
     Dates: start: 201301, end: 201601
  14. RANITIDINE HYDROCHLORIDE [Suspect]
     Active Substance: RANITIDINE HYDROCHLORIDE
     Indication: Gastrooesophageal reflux disease
  15. ZANTAC [Suspect]
     Active Substance: RANITIDINE HYDROCHLORIDE
     Indication: Dyspepsia
     Dosage: 75 MG, 1 X DAILY
     Route: 065
     Dates: start: 201301, end: 201901
  16. ZANTAC [Suspect]
     Active Substance: RANITIDINE HYDROCHLORIDE
     Indication: Gastrooesophageal reflux disease
     Dosage: 75 MG, 2 X DAILY
     Route: 065
     Dates: start: 201301, end: 201901
  17. ZANTAC [Suspect]
     Active Substance: RANITIDINE HYDROCHLORIDE
     Dosage: UNK UNK, 1 X DAILY
     Route: 065
     Dates: start: 201301, end: 201901
  18. ZANTAC [Suspect]
     Active Substance: RANITIDINE HYDROCHLORIDE
     Dosage: UNK UNK, 2 X DAILY
     Route: 065
     Dates: start: 201301, end: 201901
  19. ZANTAC [Suspect]
     Active Substance: RANITIDINE HYDROCHLORIDE
     Dosage: 150 MG, 1 X DAILY
     Route: 065
     Dates: start: 201301, end: 201901
  20. ZANTAC [Suspect]
     Active Substance: RANITIDINE HYDROCHLORIDE
     Dosage: 150 MG, 2 X DAILY
     Route: 065
     Dates: start: 201301, end: 201901
  21. RANITIDINE [Suspect]
     Active Substance: RANITIDINE
     Indication: Dyspepsia
     Dosage: 75 MG, 1 X DAILY
     Route: 065
     Dates: start: 201301, end: 201901
  22. RANITIDINE [Suspect]
     Active Substance: RANITIDINE
     Indication: Gastrooesophageal reflux disease
     Dosage: 75 MG, 2 X DAILY
     Route: 065
     Dates: start: 201301, end: 201901
  23. RANITIDINE [Suspect]
     Active Substance: RANITIDINE
     Dosage: UNK UNK, 1 X DAILY
     Route: 065
     Dates: start: 201301, end: 201901
  24. RANITIDINE [Suspect]
     Active Substance: RANITIDINE
     Dosage: UNK UNK, 2 X DAILY
     Route: 065
     Dates: start: 201301, end: 201901
  25. RANITIDINE [Suspect]
     Active Substance: RANITIDINE
     Dosage: 150 MG, 1 X DAILY
     Route: 065
     Dates: start: 201301, end: 201901
  26. RANITIDINE [Suspect]
     Active Substance: RANITIDINE
     Dosage: 150 MG, 2 X DAILY
     Route: 065
     Dates: start: 201301, end: 201901
  27. RANITIDINE HYDROCHLORIDE [Suspect]
     Active Substance: RANITIDINE HYDROCHLORIDE
     Indication: Dyspepsia
     Dosage: 75 MG, QD
     Route: 065
     Dates: start: 201301, end: 201601
  28. RANITIDINE HYDROCHLORIDE [Suspect]
     Active Substance: RANITIDINE HYDROCHLORIDE
     Indication: Gastrooesophageal reflux disease
  29. RANITIDINE [Suspect]
     Active Substance: RANITIDINE
     Indication: Dyspepsia
     Dosage: 75 MG, QD
     Route: 065
     Dates: start: 201301, end: 201601
  30. RANITIDINE [Suspect]
     Active Substance: RANITIDINE
     Indication: Gastrooesophageal reflux disease
  31. ZANTAC [Suspect]
     Active Substance: RANITIDINE HYDROCHLORIDE
     Indication: Dyspepsia
     Dosage: UNK UNK, QD
     Route: 065
     Dates: start: 201301, end: 201601
  32. ZANTAC [Suspect]
     Active Substance: RANITIDINE HYDROCHLORIDE
     Indication: Gastrooesophageal reflux disease

REACTIONS (1)
  - Renal cancer [Unknown]
